FAERS Safety Report 6963881-3 (Version None)
Quarter: 2010Q3

REPORT INFORMATION
  Report Type: 
  Country: None (occurrence: None)
  Receive Date: 20100831
  Receipt Date: 20100819
  Transmission Date: 20110219
  Serious: Yes (Life-Threatening, Hospitalization)
  Sender: FDA-Public Use
  Company Number: 2010MA001919

PATIENT
  Age: 20 Year
  Sex: Female

DRUGS (3)
  1. VENLAFAXINE HCL [Suspect]
     Indication: DEPRESSION
     Dosage: 300 MG; QD; PO
     Route: 048
     Dates: start: 20080807
  2. VALLERGAN [Concomitant]
  3. TRANDATE [Concomitant]

REACTIONS (3)
  - CAESAREAN SECTION [None]
  - DRUG EXPOSURE DURING PREGNANCY [None]
  - PRE-ECLAMPSIA [None]
